FAERS Safety Report 8690207 (Version 3)
Quarter: 2013Q4

REPORT INFORMATION
  Report Type: Spontaneous
  Country: US (occurrence: US)
  Receive Date: 20120727
  Receipt Date: 20131101
  Transmission Date: 20140711
  Serious: No
  Sender: FDA-Public Use
  Company Number: US-009507513-1207USA007188

PATIENT
  Sex: Female
  Weight: 72.56 kg

DRUGS (1)
  1. CLARITIN [Suspect]
     Indication: SINUSITIS
     Dosage: 10 MG, QAM
     Route: 048
     Dates: start: 2012

REACTIONS (3)
  - Headache [Unknown]
  - Therapeutic response unexpected [Unknown]
  - Off label use [Unknown]
